FAERS Safety Report 19494581 (Version 1)
Quarter: 2021Q3

REPORT INFORMATION
  Report Type: Spontaneous
  Country: US (occurrence: US)
  Receive Date: 20210706
  Receipt Date: 20210706
  Transmission Date: 20211014
  Serious: No
  Sender: FDA-Public Use
  Company Number: US-NOVITIUMPHARMA-2021USNVP00063

PATIENT
  Age: 63 Year
  Sex: Male

DRUGS (1)
  1. PREDNISONE TABLETS, USP 10 MG [Suspect]
     Active Substance: PREDNISONE
     Indication: SKIN DISORDER
     Route: 048
     Dates: start: 202103

REACTIONS (2)
  - Drug interaction [Unknown]
  - Vaccination failure [Unknown]
